FAERS Safety Report 8778019 (Version 2)
Quarter: 2013Q3

REPORT INFORMATION
  Report Type: Spontaneous
  Country: US (occurrence: US)
  Receive Date: 20120914
  Receipt Date: 20130806
  Transmission Date: 20140515
  Serious: Yes (Hospitalization, Other)
  Sender: FDA-Public Use
  Company Number: US-ASTRAZENECA-2012SE70129

PATIENT
  Age: 62 Year
  Sex: Female
  Weight: 49.4 kg

DRUGS (22)
  1. NEXIUM [Suspect]
     Indication: GASTRIC DISORDER
     Route: 048
     Dates: start: 1996
  2. NEXIUM [Suspect]
     Indication: GASTROOESOPHAGEAL REFLUX DISEASE
     Route: 048
     Dates: start: 1996
  3. NEXIUM [Suspect]
     Indication: HAEMORRHAGE
     Route: 048
     Dates: start: 1996
  4. NEXIUM [Suspect]
     Indication: GASTRIC DISORDER
     Route: 048
  5. NEXIUM [Suspect]
     Indication: GASTROOESOPHAGEAL REFLUX DISEASE
     Route: 048
  6. NEXIUM [Suspect]
     Indication: HAEMORRHAGE
     Route: 048
  7. NEXIUM [Suspect]
     Indication: GASTRIC DISORDER
     Dosage: TAKEN ONE CAPSULE INSTEAD OF TWO
     Route: 048
  8. NEXIUM [Suspect]
     Indication: GASTROOESOPHAGEAL REFLUX DISEASE
     Dosage: TAKEN ONE CAPSULE INSTEAD OF TWO
     Route: 048
  9. NEXIUM [Suspect]
     Indication: HAEMORRHAGE
     Dosage: TAKEN ONE CAPSULE INSTEAD OF TWO
     Route: 048
  10. TOPROL XL [Suspect]
     Indication: BLOOD PRESSURE ABNORMAL
     Route: 048
     Dates: start: 2007
  11. PRILOSEC [Suspect]
     Indication: GASTRIC DISORDER
     Route: 048
     Dates: start: 1992
  12. PROTONIX [Suspect]
     Indication: GASTRIC DISORDER
     Dosage: DAILY
     Route: 048
     Dates: start: 201208, end: 20120805
  13. KLONOPIN [Concomitant]
     Indication: SLEEP DISORDER THERAPY
     Route: 048
     Dates: start: 2003
  14. AMBIEN [Concomitant]
     Indication: SLEEP DISORDER THERAPY
     Route: 048
     Dates: start: 2003
  15. LUNESTA [Concomitant]
     Indication: SLEEP DISORDER THERAPY
     Dates: start: 20130627
  16. FENTANYL [Concomitant]
     Indication: FIBROMYALGIA
     Route: 050
  17. HYDROCODONE [Concomitant]
     Indication: ARTHRALGIA
     Route: 048
  18. FLEXERIL [Concomitant]
     Indication: MUSCLE RELAXANT THERAPY
     Route: 048
  19. PEPTO-BISMOL [Concomitant]
     Indication: HYPERCHLORHYDRIA
     Dates: start: 20130715, end: 20130722
  20. WELLBUTRIN [Concomitant]
  21. TAGAMET [Concomitant]
     Indication: GASTRIC DISORDER
  22. LEXAPRO [Concomitant]

REACTIONS (22)
  - Myocardial infarction [Unknown]
  - Chest pain [Unknown]
  - Nephrolithiasis [Unknown]
  - Renal disorder [Unknown]
  - Sepsis [Unknown]
  - Drug hypersensitivity [Unknown]
  - Respiratory arrest [Unknown]
  - Arthritis [Unknown]
  - Fibromyalgia [Unknown]
  - Pyrexia [Unknown]
  - Pain [Unknown]
  - Obstructive airways disorder [Unknown]
  - Aphagia [Unknown]
  - Weight increased [Unknown]
  - Hyperchlorhydria [Unknown]
  - Malaise [Unknown]
  - Abdominal discomfort [Unknown]
  - Diarrhoea [Unknown]
  - Nausea [Unknown]
  - Insomnia [Unknown]
  - Intentional drug misuse [Unknown]
  - Drug dose omission [Unknown]
